FAERS Safety Report 6111244-5 (Version None)
Quarter: 2009Q1

REPORT INFORMATION
  Report Type: 
  Country: None (occurrence: None)
  Receive Date: 20090311
  Receipt Date: 20090227
  Transmission Date: 20090719
  Serious: Yes (Other)
  Sender: FDA-Public Use
  Company Number: PHHY2009BR07387

PATIENT
  Age: 60 Year
  Sex: Female

DRUGS (4)
  1. DIOVAN HCT [Suspect]
     Indication: HYPERTENSION
     Dosage: 160/12.5 MG
     Dates: start: 20080901, end: 20090101
  2. INSULIN [Concomitant]
  3. MANIDIPINE HYDROCHLORIDE [Concomitant]
     Dosage: 20 MG
  4. CONCOR [Concomitant]
     Dosage: 10 MG

REACTIONS (4)
  - BLOOD PRESSURE INCREASED [None]
  - CARDIAC DISORDER [None]
  - DIZZINESS [None]
  - MALAISE [None]
